FAERS Safety Report 24263054 (Version 1)
Quarter: 2024Q3

REPORT INFORMATION
  Report Type: Spontaneous
  Country: US (occurrence: US)
  Receive Date: 20240829
  Receipt Date: 20240829
  Transmission Date: 20241017
  Serious: No
  Sender: PFIZER
  Company Number: US-PFIZER INC-202400242967

PATIENT
  Age: 39 Year
  Sex: Female
  Weight: 75.75 kg

DRUGS (11)
  1. OXBRYTA [Suspect]
     Active Substance: VOXELOTOR
     Indication: Sickle cell disease
     Dosage: 1500 MG, 1X/DAY (500MG PER TABLET AND I TAKE THREE TABLETS A DAY)
     Dates: start: 2023
  2. POTASSIUM [Suspect]
     Active Substance: POTASSIUM
     Indication: Blood potassium decreased
     Dosage: UNK
  3. HYDROXYUREA [Concomitant]
     Active Substance: HYDROXYUREA
     Dosage: UNK
  4. MORPHINE [Concomitant]
     Active Substance: MORPHINE
     Dosage: UNK
  5. FOLIC ACID [Concomitant]
     Active Substance: FOLIC ACID
     Dosage: UNK
  6. ELIQUIS [Concomitant]
     Active Substance: APIXABAN
     Dosage: UNK
  7. CLONIDINE [Concomitant]
     Active Substance: CLONIDINE
     Dosage: UNK
  8. OMEPRAZOLE [Concomitant]
     Active Substance: OMEPRAZOLE
     Dosage: UNK
  9. GABAPENTIN [Concomitant]
     Active Substance: GABAPENTIN
     Dosage: UNK
  10. FAMOTIDINE [Concomitant]
     Active Substance: FAMOTIDINE
     Dosage: UNK
  11. TRULANCE [Concomitant]
     Active Substance: PLECANATIDE
     Dosage: UNK

REACTIONS (3)
  - Blood potassium decreased [Unknown]
  - Condition aggravated [Unknown]
  - Pain [Unknown]
